FAERS Safety Report 7882368-7 (Version None)
Quarter: 2011Q4

REPORT INFORMATION
  Report Type: 
  Country: None (occurrence: None)
  Receive Date: 20111101
  Receipt Date: 20110614
  Transmission Date: 20120403
  Serious: Yes (Other)
  Sender: FDA-Public Use
  Company Number: US-AMGEN-USASP2011030602

PATIENT
  Age: 60 Year
  Sex: Female

DRUGS (15)
  1. IBANDRONATE SODIUM [Concomitant]
     Dosage: UNK
  2. TRAMADOL HCL [Concomitant]
     Dosage: UNK
  3. ENBREL [Suspect]
     Indication: RHEUMATOID ARTHRITIS
     Dosage: UNK
     Dates: start: 20110101
  4. LEVOTHYROXINE SODIUM [Concomitant]
     Dosage: UNK
  5. VALSARTAN [Concomitant]
     Dosage: UNK
  6. HUMIRA [Concomitant]
     Dosage: 40 MG, Q2WK
     Dates: start: 20090101, end: 20090101
  7. WARFARIN [Concomitant]
     Dosage: UNK
  8. TOLTERODINE TARTRATE [Concomitant]
     Dosage: UNK
  9. CYANOCOBALAMIN [Concomitant]
     Dosage: UNK
  10. MAGNESIUM OXIDE [Concomitant]
     Dosage: UNK
  11. POTASSIUM BICARBONATE [Concomitant]
     Dosage: UNK
  12. METOPROLOL TARTRATE [Concomitant]
     Dosage: UNK
  13. SPIRONOLACTONE [Concomitant]
  14. RYTHMOL [Concomitant]
     Dosage: 225 MG, UNK
  15. POTASSIUM CHLORIDE [Concomitant]
     Dosage: UNK

REACTIONS (1)
  - DRUG HYPERSENSITIVITY [None]
